FAERS Safety Report 7563562-1 (Version None)
Quarter: 2011Q2

REPORT INFORMATION
  Report Type: 
  Country: None (occurrence: None)
  Receive Date: 20110622
  Receipt Date: 20110608
  Transmission Date: 20111010
  Serious: Yes (Hospitalization, Other)
  Sender: FDA-Public Use
  Company Number: FR-JNJFOC-20110605274

PATIENT
  Sex: Female

DRUGS (7)
  1. REMICADE [Suspect]
     Route: 042
     Dates: start: 20100707
  2. REMICADE [Suspect]
     Dosage: MORE THAN 20 INFUSIONS
     Route: 042
     Dates: start: 20040101, end: 20070101
  3. REMICADE [Suspect]
     Route: 042
     Dates: start: 20100526
  4. REMICADE [Suspect]
     Route: 042
     Dates: start: 20091101
  5. REMICADE [Suspect]
     Route: 042
     Dates: start: 20100408
  6. CORTICOSTEROIDS [Concomitant]
     Indication: CROHN'S DISEASE
  7. REMICADE [Suspect]
     Indication: CROHN'S DISEASE
     Route: 042
     Dates: end: 20100818

REACTIONS (3)
  - DRUG EXPOSURE BEFORE PREGNANCY [None]
  - LARGE INTESTINAL ULCER [None]
  - LARGE INTESTINE PERFORATION [None]
